FAERS Safety Report 26107669 (Version 1)
Quarter: 2025Q4

REPORT INFORMATION
  Report Type: Spontaneous
  Country: US (occurrence: None)
  Receive Date: 20251127
  Receipt Date: 20251127
  Transmission Date: 20260117
  Serious: Yes (Hospitalization)
  Sender: FDA-CTU
  Company Number: None

PATIENT
  Age: 74 Year
  Sex: Female
  Weight: 49.89 kg

DRUGS (2)
  1. GEMCITABINE HYDROCHLORIDE [Suspect]
     Active Substance: GEMCITABINE HYDROCHLORIDE
     Dates: end: 20251111
  2. PACLITAXEL [Suspect]
     Active Substance: PACLITAXEL
     Dates: end: 20251111

REACTIONS (8)
  - Pyrexia [None]
  - White blood cell count increased [None]
  - Asthenia [None]
  - Fall [None]
  - Balance disorder [None]
  - Chills [None]
  - Cough [None]
  - Dizziness [None]

NARRATIVE: CASE EVENT DATE: 20251125
